FAERS Safety Report 21694305 (Version 2)
Quarter: 2022Q4

REPORT INFORMATION
  Report Type: Spontaneous
  Country: JP (occurrence: JP)
  Receive Date: 20221207
  Receipt Date: 20221223
  Transmission Date: 20230113
  Serious: Yes (Hospitalization, Other)
  Sender: FDA-Public Use
  Company Number: JP-GILEAD-2022-0607564

PATIENT
  Age: 56 Year
  Sex: Male

DRUGS (2)
  1. VEMLIDY [Suspect]
     Active Substance: TENOFOVIR ALAFENAMIDE FUMARATE
     Indication: Hepatitis B
     Dosage: UNK
     Route: 048
  2. VEMLIDY [Suspect]
     Active Substance: TENOFOVIR ALAFENAMIDE FUMARATE
     Dosage: UNK
     Route: 048
     Dates: start: 20221205

REACTIONS (2)
  - Cerebral infarction [Recovering/Resolving]
  - Product dispensing error [Unknown]

NARRATIVE: CASE EVENT DATE: 20221020
